FAERS Safety Report 9027898 (Version 1)
Quarter: 2013Q1

REPORT INFORMATION
  Report Type: Spontaneous
  Country: US (occurrence: None)
  Receive Date: 20130115
  Receipt Date: 20130115
  Transmission Date: 20140127
  Serious: Yes (Life-Threatening, Hospitalization)
  Sender: FDA-Public Use
  Company Number: None

PATIENT
  Age: 53 Year
  Sex: Male
  Weight: 90.72 kg

DRUGS (1)
  1. NALTREXONE [Suspect]
     Indication: DEPENDENCE
     Dates: start: 20110604, end: 20110804

REACTIONS (3)
  - Infection [None]
  - Renal failure [None]
  - Product contamination [None]
